FAERS Safety Report 17810541 (Version 2)
Quarter: 2020Q2

REPORT INFORMATION
  Report Type: Spontaneous
  Country: NL (occurrence: NL)
  Receive Date: 20200521
  Receipt Date: 20200530
  Transmission Date: 20200714
  Serious: Yes (Other)
  Sender: FDA-Public Use
  Company Number: NL-AUROBINDO-AUR-APL-2020-025058

PATIENT
  Age: 18 Year
  Sex: Male

DRUGS (3)
  1. LEVETIRACETAM AUROBINDO 1000 MG FILM-COATED TABLETS [Suspect]
     Active Substance: LEVETIRACETAM
     Dosage: 1 DOSAGE FORM (SUNDAY MORNING)
     Route: 065
     Dates: start: 20200510
  2. LEVETIRACETAM AUROBINDO 1000 MG FILM-COATED TABLETS [Suspect]
     Active Substance: LEVETIRACETAM
     Indication: EPILEPSY
     Dosage: 1000 MILLIGRAM, TWO TIMES A DAY
     Route: 065
     Dates: start: 20200509
  3. LEVETIRACETAM AUROBINDO 1000 MG FILM-COATED TABLETS [Suspect]
     Active Substance: LEVETIRACETAM
     Dosage: 1 DOSAGE FORM, IN THE EVENING
     Route: 065
     Dates: start: 20200509

REACTIONS (2)
  - Wrong technique in product usage process [Unknown]
  - Seizure [Unknown]

NARRATIVE: CASE EVENT DATE: 20200510
